FAERS Safety Report 16849640 (Version 1)
Quarter: 2019Q4

REPORT INFORMATION
  Report Type: Spontaneous
  Country: US (occurrence: US)
  Receive Date: 20190925
  Receipt Date: 20190925
  Transmission Date: 20200122
  Serious: Yes (Other)
  Sender: FDA-Public Use
  Company Number: None

PATIENT
  Age: 79 Year
  Sex: Male
  Weight: 81.9 kg

DRUGS (6)
  1. TRAMADOL HCL [Suspect]
     Active Substance: TRAMADOL HYDROCHLORIDE
     Indication: NEURALGIA
     Dosage: ?          QUANTITY:2 TABLET(S);?
     Route: 048
     Dates: start: 20180410, end: 20190914
  2. DILTILAZEM [Concomitant]
  3. PACEMAKER [Concomitant]
  4. LYRICA [Concomitant]
     Active Substance: PREGABALIN
  5. PRESERVISION [Concomitant]
     Active Substance: MINERALS\VITAMINS
  6. LOSARTAN. [Concomitant]
     Active Substance: LOSARTAN

REACTIONS (2)
  - Skin lesion [None]
  - Dyspnoea [None]

NARRATIVE: CASE EVENT DATE: 20190912
